FAERS Safety Report 25243656 (Version 2)
Quarter: 2025Q2

REPORT INFORMATION
  Report Type: Spontaneous
  Country: SI (occurrence: SI)
  Receive Date: 20250428
  Receipt Date: 20250502
  Transmission Date: 20250717
  Serious: Yes (Other)
  Sender: AMGEN
  Company Number: SI-AMGEN-SVNSP2025081372

PATIENT
  Age: 76 Year
  Sex: Female

DRUGS (1)
  1. PROLIA [Suspect]
     Active Substance: DENOSUMAB
     Indication: Product used for unknown indication
     Route: 065
     Dates: start: 2019

REACTIONS (3)
  - Lumbar vertebral fracture [Unknown]
  - Thoracic vertebral fracture [Unknown]
  - Tooth restoration [Unknown]

NARRATIVE: CASE EVENT DATE: 20250301
